FAERS Safety Report 13885027 (Version 1)
Quarter: 2017Q3

REPORT INFORMATION
  Report Type: Other
  Country: HR (occurrence: HR)
  Receive Date: 20170821
  Receipt Date: 20170821
  Transmission Date: 20171127
  Serious: Yes (Other)
  Sender: FDA-Public Use
  Company Number: HR-CELLTRION INC.-2017HR010748

PATIENT

DRUGS (2)
  1. SALINE                             /00075401/ [Concomitant]
     Active Substance: SODIUM CHLORIDE
     Dosage: UNK
     Route: 065
     Dates: start: 20170414
  2. INFLECTRA [Suspect]
     Active Substance: INFLIXIMAB-DYYB
     Indication: SPONDYLOARTHROPATHY
     Dosage: 10 MG/ML; 400 MG IN 250 ML SALINE
     Route: 042
     Dates: start: 20170414

REACTIONS (7)
  - Nasal congestion [Recovered/Resolved]
  - Blood pressure increased [Recovered/Resolved]
  - Feeling hot [Recovered/Resolved]
  - Conjunctival hyperaemia [Recovered/Resolved]
  - Abnormal sensation in eye [Recovered/Resolved]
  - Erythema [Recovered/Resolved]
  - Dyspnoea [Recovered/Resolved]

NARRATIVE: CASE EVENT DATE: 20170414
